FAERS Safety Report 17319813 (Version 1)
Quarter: 2020Q1

REPORT INFORMATION
  Report Type: Spontaneous
  Country: AU (occurrence: AU)
  Receive Date: 20200125
  Receipt Date: 20200125
  Transmission Date: 20200409
  Serious: Yes (Other)
  Sender: FDA-Public Use
  Company Number: NVSC2020AU014207

PATIENT
  Age: 78 Year
  Sex: Female

DRUGS (3)
  1. LETROZOLE. [Suspect]
     Active Substance: LETROZOLE
     Indication: PRODUCT USED FOR UNKNOWN INDICATION
     Dosage: UNK
     Route: 065
  2. KISQALI [Suspect]
     Active Substance: RIBOCICLIB
     Indication: PRODUCT USED FOR UNKNOWN INDICATION
     Dosage: UNK
     Route: 065
  3. TAMOXIFEN [Suspect]
     Active Substance: TAMOXIFEN
     Indication: PRODUCT USED FOR UNKNOWN INDICATION
     Dosage: UNK
     Route: 065

REACTIONS (11)
  - Tumour marker increased [Unknown]
  - Weight decreased [Unknown]
  - Liver function test abnormal [Unknown]
  - Hepatic lesion [Unknown]
  - Neutropenia [Unknown]
  - Depressed mood [Unknown]
  - Arthralgia [Unknown]
  - Abdominal pain upper [Unknown]
  - Tumour marker decreased [Unknown]
  - Electrocardiogram QT prolonged [Unknown]
  - Nausea [Unknown]
